FAERS Safety Report 15615870 (Version 5)
Quarter: 2025Q4

REPORT INFORMATION
  Report Type: Report from Study
  Country: GB (occurrence: GB)
  Receive Date: 20181114
  Receipt Date: 20251226
  Transmission Date: 20260118
  Serious: Yes (Life-Threatening, Hospitalization, Other)
  Sender: AUROBINDO
  Company Number: GB-AUROBINDO-AUR-APL-2018-055284

PATIENT
  Age: 18 Year
  Sex: Female
  Weight: 60 kg

DRUGS (1)
  1. ACETAMINOPHEN [Suspect]
     Active Substance: ACETAMINOPHEN
     Indication: Product used for unknown indication
     Dosage: BETWEEN 16 TO 62 GRAMS
     Route: 061

REACTIONS (3)
  - Acute hepatic failure [Recovered/Resolved]
  - Abscess drainage [Recovered/Resolved]
  - Overdose [Recovered/Resolved]
